FAERS Safety Report 10354165 (Version 1)
Quarter: 2014Q3

REPORT INFORMATION
  Report Type: Report from Study
  Country: US (occurrence: US)
  Receive Date: 20140731
  Receipt Date: 20140731
  Transmission Date: 20150326
  Serious: Yes (Death)
  Sender: FDA-Public Use
  Company Number: PHEH2014US015204

PATIENT
  Age: 85 Year
  Sex: Female

DRUGS (5)
  1. VITAMIN D [Concomitant]
     Active Substance: CHOLECALCIFEROL
     Dosage: UNK UKN, UNK
  2. SINEMET [Concomitant]
     Active Substance: CARBIDOPA\LEVODOPA
     Dosage: UNK UKN, UNK
  3. MULTIVIT//VITAMINS NOS [Concomitant]
     Active Substance: VITAMINS
     Dosage: UNK UKN, UNK
  4. EXJADE [Suspect]
     Active Substance: DEFERASIROX
     Indication: ANAEMIA
     Dosage: 5 DF, DAILY
     Route: 048
     Dates: start: 20091104
  5. CALCIUM D [Concomitant]
     Active Substance: CALCIUM\VITAMIN D
     Dosage: UNK UKN, UNK

REACTIONS (1)
  - Death [Fatal]

NARRATIVE: CASE EVENT DATE: 20140725
